FAERS Safety Report 5464479-9 (Version None)
Quarter: 2007Q3

REPORT INFORMATION
  Report Type: 
  Country: None (occurrence: None)
  Receive Date: 20070921
  Receipt Date: 20070920
  Transmission Date: 20080115
  Serious: Yes (Other)
  Sender: FDA-Public Use
  Company Number: US-SHR-US-2007-035356

PATIENT
  Age: 65 Year
  Sex: Female

DRUGS (1)
  1. CLIMARA [Suspect]
     Dosage: 37.5 A?G/DAY, CONT
     Route: 062
     Dates: start: 19990101

REACTIONS (3)
  - BREAST CYST [None]
  - BREAST TENDERNESS [None]
  - CAROTID ARTERY STENT INSERTION [None]
